FAERS Safety Report 9122006 (Version 1)
Quarter: 2013Q1

REPORT INFORMATION
  Report Type: Spontaneous
  Country: FR (occurrence: FR)
  Receive Date: 20130114
  Receipt Date: 20130114
  Transmission Date: 20140127
  Serious: Yes (Hospitalization)
  Sender: FDA-Public Use
  Company Number: FR-ASTRAZENECA-2013SE01617

PATIENT
  Age: 33 Year
  Sex: Female
  Weight: 61 kg

DRUGS (5)
  1. XEROQUEL [Suspect]
     Indication: BIPOLAR DISORDER
     Route: 048
     Dates: start: 20120503, end: 20120505
  2. LITHIUM [Concomitant]
  3. ZOLOFT [Concomitant]
  4. STILNOX [Concomitant]
  5. LEELOO GE [Concomitant]

REACTIONS (11)
  - Fall [Recovered/Resolved]
  - Loss of consciousness [Recovered/Resolved]
  - Convulsion [Recovered/Resolved]
  - Conjunctivitis [Recovered/Resolved]
  - Head injury [Recovered/Resolved]
  - Tonic clonic movements [Recovered/Resolved]
  - Post-traumatic amnestic disorder [Recovered/Resolved]
  - Confusional state [Recovered/Resolved]
  - Anxiety [Recovered/Resolved]
  - Vitamin D deficiency [Unknown]
  - Dizziness [Recovered/Resolved]
